FAERS Safety Report 18511269 (Version 1)
Quarter: 2020Q4

REPORT INFORMATION
  Report Type: Spontaneous
  Country: US (occurrence: US)
  Receive Date: 20201117
  Receipt Date: 20201117
  Transmission Date: 20210114
  Serious: Yes (Death)
  Sender: FDA-Public Use
  Company Number: None

PATIENT
  Age: 88 Year
  Sex: Male
  Weight: 74.25 kg

DRUGS (16)
  1. VITAMIN B12 [Concomitant]
     Active Substance: CYANOCOBALAMIN
  2. VITAMIN C [Concomitant]
     Active Substance: ASCORBIC ACID
  3. ISOSORBIDE MONONITRATE. [Concomitant]
     Active Substance: ISOSORBIDE MONONITRATE
  4. FOLIC ACID. [Concomitant]
     Active Substance: FOLIC ACID
  5. AMIODARONE [Concomitant]
     Active Substance: AMIODARONE
  6. TEMAZEPAM. [Concomitant]
     Active Substance: TEMAZEPAM
  7. SPIRONOLACTONE. [Concomitant]
     Active Substance: SPIRONOLACTONE
  8. DEFERASIROX. [Suspect]
     Active Substance: DEFERASIROX
     Indication: MYELODYSPLASTIC SYNDROME
     Route: 048
     Dates: start: 20200309, end: 20201111
  9. BUMETANIDE. [Concomitant]
     Active Substance: BUMETANIDE
  10. METOPROLOL. [Concomitant]
     Active Substance: METOPROLOL
  11. WARFARIN [Concomitant]
     Active Substance: WARFARIN
  12. TAMSULOSIN [Concomitant]
     Active Substance: TAMSULOSIN
  13. OCCUVITE-LUTEIN [Concomitant]
  14. LEVOTHYROXINE. [Concomitant]
     Active Substance: LEVOTHYROXINE
  15. ENTRESTO [Concomitant]
     Active Substance: SACUBITRIL\VALSARTAN
  16. ALPRAZOLAM. [Concomitant]
     Active Substance: ALPRAZOLAM

REACTIONS (1)
  - Death [None]

NARRATIVE: CASE EVENT DATE: 20201111
